FAERS Safety Report 9156355 (Version 1)
Quarter: 2013Q1

REPORT INFORMATION
  Report Type: Spontaneous
  Country: US (occurrence: None)
  Receive Date: 20130307
  Receipt Date: 20130307
  Transmission Date: 20140127
  Serious: Yes (Disabling, Other)
  Sender: FDA-Public Use
  Company Number: None

PATIENT
  Age: 60 Year
  Sex: Male
  Weight: 79.38 kg

DRUGS (2)
  1. SENNA LAXATIVE [Suspect]
     Indication: CONSTIPATION
     Dosage: 1 SOFTGELS, 1 A DAY, PO
     Route: 048
     Dates: start: 20060101, end: 20121101
  2. DOCUSATE [Suspect]
     Dosage: 6 TABLETS, EVERY OTHER DAY, PO
     Route: 048
     Dates: start: 20060101, end: 20121101

REACTIONS (1)
  - Intestinal polyp [None]
